FAERS Safety Report 5393098-8 (Version None)
Quarter: 2007Q3

REPORT INFORMATION
  Report Type: 
  Country: None (occurrence: None)
  Receive Date: 20070718
  Receipt Date: 20070625
  Transmission Date: 20080115
  Serious: Yes (Other)
  Sender: FDA-Public Use
  Company Number: 001#1#2007-00449

PATIENT

DRUGS (2)
  1. ALPROSTADIL [Suspect]
  2. HEPARIN [Concomitant]

REACTIONS (1)
  - HAEMORRHAGE [None]
